FAERS Safety Report 12890154 (Version 3)
Quarter: 2017Q2

REPORT INFORMATION
  Report Type: Spontaneous
  Country: US (occurrence: US)
  Receive Date: 20161027
  Receipt Date: 20170422
  Transmission Date: 20170830
  Serious: Yes (Hospitalization, Other)
  Sender: FDA-Public Use
  Company Number: US-ALEXION PHARMACEUTICALS INC.-A201607982

PATIENT
  Sex: Female

DRUGS (1)
  1. SOLIRIS [Suspect]
     Active Substance: ECULIZUMAB
     Indication: PAROXYSMAL NOCTURNAL HAEMOGLOBINURIA
     Dosage: 900 MG, UNK
     Route: 042

REACTIONS (10)
  - Red blood cell count decreased [Unknown]
  - Immunodeficiency [Unknown]
  - Liver abscess [Unknown]
  - Rectal haemorrhage [Unknown]
  - Large intestine perforation [Unknown]
  - Rectal fissure [Unknown]
  - Pain [Unknown]
  - Colitis [Unknown]
  - Diarrhoea [Unknown]
  - Platelet count decreased [Unknown]
